FAERS Safety Report 17913949 (Version 1)
Quarter: 2020Q2

REPORT INFORMATION
  Report Type: Spontaneous
  Country: FR (occurrence: FR)
  Receive Date: 20200618
  Receipt Date: 20200618
  Transmission Date: 20200714
  Serious: Yes (Hospitalization)
  Sender: FDA-Public Use
  Company Number: FR-009507513-1909FRA005850

PATIENT
  Age: 33 Year
  Sex: Male
  Weight: 56 kg

DRUGS (2)
  1. CIPROFLOXACIN. [Concomitant]
     Active Substance: CIPROFLOXACIN
     Indication: CONDITION AGGRAVATED
     Dosage: 750 MILLIGRAM, QD
     Route: 048
     Dates: start: 20190130, end: 20190222
  2. TIENAM 500MG/500MG, POUDRE POUR PERFUSION [Suspect]
     Active Substance: CILASTATIN SODIUM\IMIPENEM
     Indication: RESPIRATORY FAILURE
     Dosage: 1 GRAM, QD
     Route: 042
     Dates: start: 20190130, end: 20190215

REACTIONS (3)
  - Treatment failure [Not Recovered/Not Resolved]
  - Adverse event [Unknown]
  - Product use in unapproved indication [Unknown]

NARRATIVE: CASE EVENT DATE: 20190130
